FAERS Safety Report 19885696 (Version 1)
Quarter: 2021Q3

REPORT INFORMATION
  Report Type: Spontaneous
  Country: US (occurrence: US)
  Receive Date: 20210927
  Receipt Date: 20210927
  Transmission Date: 20211014
  Serious: Yes (Life-Threatening, Hospitalization)
  Sender: FDA-Public Use
  Company Number: US-LUPIN PHARMACEUTICALS INC.-2021-18143

PATIENT
  Age: 85 Year
  Sex: Female

DRUGS (14)
  1. CALCIUM ACETATE. [Suspect]
     Active Substance: CALCIUM ACETATE
     Indication: SHOCK HAEMORRHAGIC
     Dosage: 2 GRAM
     Route: 042
  2. SODIUM BICARBONATE. [Suspect]
     Active Substance: SODIUM BICARBONATE
     Indication: SHOCK HAEMORRHAGIC
     Dosage: 50 MILLIEQUIVALENT (10 UNITS)
     Route: 065
  3. DENOSUMAB [Concomitant]
     Active Substance: DENOSUMAB
     Indication: PRODUCT USED FOR UNKNOWN INDICATION
     Dosage: UNK
     Route: 065
  4. SPIRONOLACTONE. [Concomitant]
     Active Substance: SPIRONOLACTONE
     Indication: PRODUCT USED FOR UNKNOWN INDICATION
     Dosage: UNK
     Route: 065
  5. TIOTROPIUM [Concomitant]
     Active Substance: TIOTROPIUM
     Indication: PRODUCT USED FOR UNKNOWN INDICATION
     Dosage: UNK
     Route: 065
  6. INSULIN LISPRO [Suspect]
     Active Substance: INSULIN LISPRO
     Indication: SHOCK HAEMORRHAGIC
     Dosage: UNK 10 UNITS
     Route: 042
  7. PANTOPRAZOLE [Concomitant]
     Active Substance: PANTOPRAZOLE
     Indication: GASTRITIS PROPHYLAXIS
     Dosage: 80 MILLIGRAM
     Route: 042
  8. DABIGATRAN [Concomitant]
     Active Substance: DABIGATRAN
     Indication: ANTICOAGULANT THERAPY
     Dosage: 75 MILLIGRAM, BID
     Route: 065
  9. FLUTICASONE FUROATE;VILANTEROL [Concomitant]
     Active Substance: FLUTICASONE FUROATE\VILANTEROL TRIFENATATE
     Indication: PRODUCT USED FOR UNKNOWN INDICATION
     Dosage: UNK
     Route: 065
  10. DIGOXIN. [Concomitant]
     Active Substance: DIGOXIN
     Indication: PRODUCT USED FOR UNKNOWN INDICATION
     Dosage: UNK
     Route: 065
  11. FUROSEMIDE. [Concomitant]
     Active Substance: FUROSEMIDE
     Indication: PRODUCT USED FOR UNKNOWN INDICATION
     Dosage: UNK
     Route: 065
  12. POTASSIUM CHLORIDE. [Concomitant]
     Active Substance: POTASSIUM CHLORIDE
     Indication: PRODUCT USED FOR UNKNOWN INDICATION
     Dosage: UNK
     Route: 065
  13. SODIUM CHLORIDE. [Concomitant]
     Active Substance: SODIUM CHLORIDE
     Indication: DRUG THERAPY
     Dosage: UNK
     Route: 065
  14. DEXTROSE. [Suspect]
     Active Substance: DEXTROSE
     Indication: SHOCK HAEMORRHAGIC
     Dosage: 25 GRAM
     Route: 042

REACTIONS (2)
  - Drug ineffective [Unknown]
  - Condition aggravated [Unknown]
